FAERS Safety Report 9676195 (Version 2)
Quarter: 2013Q4

REPORT INFORMATION
  Report Type: Spontaneous
  Country: FI (occurrence: FI)
  Receive Date: 20131107
  Receipt Date: 20131121
  Transmission Date: 20140711
  Serious: Yes (Death, Hospitalization, Other)
  Sender: FDA-Public Use
  Company Number: FI-PFIZER INC-2013305507

PATIENT
  Age: 85 Year
  Sex: Female

DRUGS (24)
  1. VI-SIBLIN [Suspect]
     Dosage: 1 MEASURE (610 MG/G), DAILY
     Route: 065
     Dates: end: 20130930
  2. SOMAC [Suspect]
     Dosage: 20 MG, 1X/DAY, IN THE MORNING
     Route: 065
     Dates: start: 20130506, end: 20130930
  3. LITALGIN [Suspect]
     Dosage: 1 X 1-2, AS NEEDED
     Route: 065
     Dates: start: 20110816, end: 20130930
  4. DIFORMIN RETARD [Suspect]
     Dosage: 500 MG, 2X/DAY, IN THE MORNING AND IN THE EVENING
     Route: 065
     Dates: start: 20130528, end: 20130930
  5. PRADAXA [Suspect]
     Dosage: 110 MG, 2X/DAY, IN THE MORNING AND IN THE NIGHT
     Route: 065
     Dates: start: 20130704, end: 20130930
  6. FURESIS [Suspect]
     Dosage: 40 MG, 2X/DAY, IN THE MORNING AND IN THE DAYTIME
     Route: 065
     Dates: start: 20070724, end: 20130930
  7. ENALAPRIL RATIOPHARM [Suspect]
     Dosage: 10 MG, 1X/DAY, IN THE MORNING
     Dates: start: 20110803, end: 20130930
  8. PRAVASTATIN RATIOPHARM [Suspect]
     Dosage: 40 MG, 1X/DAY, IN THE EVENING
     Dates: start: 20110728, end: 20130930
  9. APURIN [Suspect]
     Dosage: 100 MG, 1X/DAY, IN THE MORNING
     Dates: start: 20111102, end: 20130930
  10. NORSPAN [Suspect]
     Dosage: 10 UG/H, 1X1, IN THE EVENING
     Dates: start: 20130604, end: 20130930
  11. ZOPINOX [Suspect]
     Dosage: 7.5 MG, 1X/DAY
     Dates: start: 20130110, end: 20130930
  12. NASOFAN [Suspect]
     Dosage: 50 UG/DOSE, 2 SPRAYS ONCE DAILY
     Dates: start: 20101015, end: 20130930
  13. BRICANYL TURBUHALER [Suspect]
     Dosage: 0.25 MG, AS NEEDED
     Dates: start: 20070814, end: 20130930
  14. IPRAMOL [Suspect]
     Dosage: 0.5/2.5 MG, 4 TO 6 TIMES A DAY, AS NEEDED
     Dates: start: 20130910, end: 20130930
  15. FLIXOTIDE EVOHALER [Suspect]
     Dosage: 125 UG, 1 TO 2 BREATHS TWICE DAILY, IN THE MORNING AND IN THE EVENING
     Dates: start: 20070309, end: 20130930
  16. CARBOMER [Suspect]
     Dosage: 2.5 MG, AS NEEDED
     Dates: start: 20130219, end: 20130930
  17. MYCOSTATIN [Concomitant]
     Dosage: 100000 IU/ML, 4X/DAY, IN THE MORNING, IN THE DAYTIME, IN THE EVENING AND IN THE NIGHT
     Dates: start: 20130911
  18. CALCICHEW-D3 FORTE [Concomitant]
     Dosage: 500 MG / 10 UG, 1X2, IN THE MORNING AND IN THE EVENING
     Dates: start: 20120821
  19. KALEORID [Concomitant]
     Dosage: 1 G, 2X/DAY, IN THE MORNING AND IN THE EVENING
     Dates: start: 20130506
  20. DINIT [Concomitant]
     Dosage: 1.25 MG, AS NEEDED
     Dates: start: 20070306
  21. ISANGINA [Concomitant]
     Dosage: 25 MG, 1X/DAY, IN THE MORNING
     Dates: start: 20070403
  22. ORLOC [Concomitant]
     Dosage: 10 MG, 1X/DAY, IN THE MORNING
     Dates: start: 20130528
  23. PREDNISOLON [Concomitant]
     Dosage: 5 MG, 1X/DAY, IN THE MORNING
     Dates: start: 20130506
  24. PARA-TABS [Concomitant]
     Dosage: 500 MG, 3X/DAY, AS NEEDED
     Dates: start: 20070814

REACTIONS (4)
  - Bone marrow failure [Fatal]
  - General physical health deterioration [Unknown]
  - Neutropenic infection [Unknown]
  - Haematoma [Unknown]
